FAERS Safety Report 17305830 (Version 1)
Quarter: 2020Q1

REPORT INFORMATION
  Report Type: Spontaneous
  Country: US (occurrence: US)
  Receive Date: 20200123
  Receipt Date: 20200123
  Transmission Date: 20200409
  Serious: Yes (Hospitalization)
  Sender: FDA-Public Use
  Company Number: US-009507513-2001USA007825

PATIENT
  Age: 6 Year
  Sex: Female
  Weight: 21 kg

DRUGS (6)
  1. PROVENTIL [Suspect]
     Active Substance: ALBUTEROL
     Dosage: 10 MILLIGRAM NEBULIZED
  2. PROVENTIL [Suspect]
     Active Substance: ALBUTEROL
     Dosage: 5 MILLIGRAM
  3. MAGNESIUM SULFATE. [Concomitant]
     Active Substance: MAGNESIUM SULFATE
     Dosage: 50 MILLIGRAM/KILOGRAM, ONCE
  4. PROVENTIL [Suspect]
     Active Substance: ALBUTEROL
     Dosage: 20 MG/HR NEBULIZED FOR 5 HR
  5. METHYLPREDNISOLONE. [Concomitant]
     Active Substance: METHYLPREDNISOLONE
     Dosage: UNK
     Route: 042
  6. METHYLPREDNISOLONE. [Concomitant]
     Active Substance: METHYLPREDNISOLONE
     Dosage: 1 MILLIGRAM/KILOGRAM, TWICE DAILY (BID)
     Route: 042

REACTIONS (1)
  - Supraventricular tachycardia [Recovered/Resolved]
